FAERS Safety Report 8046107-1 (Version None)
Quarter: 2012Q1

REPORT INFORMATION
  Report Type: 
  Country: None (occurrence: None)
  Receive Date: 20120113
  Receipt Date: 20120110
  Transmission Date: 20120608
  Serious: No
  Sender: FDA-Public Use
  Company Number: US-PFIZER INC-2012007619

PATIENT
  Sex: Female
  Weight: 52.608 kg

DRUGS (3)
  1. IBUPROFEN (ADVIL) [Suspect]
     Indication: MIGRAINE
     Dosage: 200 MG, 1X/DAY
     Route: 048
     Dates: end: 20120109
  2. ALBUTEROL [Concomitant]
     Indication: ASTHMA
     Dosage: UNK
  3. IBUPROFEN (ADVIL) [Suspect]
     Indication: HEADACHE

REACTIONS (4)
  - RASH [None]
  - DIZZINESS [None]
  - FEELING ABNORMAL [None]
  - CHEST PAIN [None]
